FAERS Safety Report 5157662-3 (Version None)
Quarter: 2006Q4

REPORT INFORMATION
  Report Type: 
  Country: None (occurrence: None)
  Receive Date: 20061127
  Receipt Date: 20060925
  Transmission Date: 20070319
  Serious: Yes (Death)
  Sender: FDA-Public Use
  Company Number: PHEH2006US12147

PATIENT
  Age: 97 Year
  Sex: Female
  Weight: 51.7 kg

DRUGS (2)
  1. TRIAMTERENE AND HYDROCHLOROTHIAZID ^HARRIS^ [Concomitant]
     Indication: HYPERTENSION
     Dosage: 37.5/25 DAILY
     Route: 048
  2. EXJADE [Suspect]
     Indication: IRON OVERLOAD
     Dosage: 1000 MG, QD
     Route: 048
     Dates: start: 20060601, end: 20060727

REACTIONS (2)
  - ACUTE MYELOID LEUKAEMIA [None]
  - CARDIO-RESPIRATORY ARREST [None]
